FAERS Safety Report 7480752-7 (Version None)
Quarter: 2011Q2

REPORT INFORMATION
  Report Type: 
  Country: None (occurrence: None)
  Receive Date: 20110506
  Receipt Date: 20110421
  Transmission Date: 20111010
  Serious: Yes (Other)
  Sender: FDA-Public Use
  Company Number: ACO_23799_2011

PATIENT
  Age: 28 Year
  Sex: Female

DRUGS (1)
  1. TIZANIDINE HYDROCHLORIDE [Suspect]
     Indication: PRODUCT USED FOR UNKNOWN INDICATION
     Dosage: 4 MG, ORAL
     Route: 048
     Dates: start: 20110313

REACTIONS (1)
  - DRUG EXPOSURE DURING PREGNANCY [None]
